FAERS Safety Report 16672151 (Version 1)
Quarter: 2019Q3

REPORT INFORMATION
  Report Type: Spontaneous
  Country: CN (occurrence: CN)
  Receive Date: 20190806
  Receipt Date: 20190806
  Transmission Date: 20191004
  Serious: Yes (Other)
  Sender: FDA-Public Use
  Company Number: CN-ROCHE-2369001

PATIENT
  Age: 55 Year
  Sex: Female

DRUGS (10)
  1. CETUXIMAB. [Concomitant]
     Active Substance: CETUXIMAB
     Dosage: TARGETED THERAPY
     Route: 065
     Dates: start: 20181108
  2. IRINOTECAN [Concomitant]
     Active Substance: IRINOTECAN
     Indication: ADENOCARCINOMA OF COLON
     Route: 065
     Dates: start: 20161231
  3. FLUOROURACIL. [Concomitant]
     Active Substance: FLUOROURACIL
     Indication: ADENOCARCINOMA OF COLON
     Dosage: 0.5 ON DAY 1 AND 3.5 G BY CHEMOTHERAPY PUMP FOR 46 HOURS
     Route: 065
     Dates: start: 20161231
  4. CAPECITABINE. [Suspect]
     Active Substance: CAPECITABINE
     Indication: ADENOCARCINOMA OF COLON
     Route: 048
     Dates: start: 20160202
  5. CAPECITABINE. [Suspect]
     Active Substance: CAPECITABINE
     Route: 048
     Dates: start: 20170221
  6. OXALIPLATIN. [Concomitant]
     Active Substance: OXALIPLATIN
     Indication: ADENOCARCINOMA OF COLON
     Route: 065
     Dates: start: 20160202
  7. CALCIUM FOLINATE [Concomitant]
     Active Substance: LEUCOVORIN CALCIUM
     Indication: ADENOCARCINOMA OF COLON
     Route: 065
     Dates: start: 20161231
  8. CETUXIMAB. [Concomitant]
     Active Substance: CETUXIMAB
     Dosage: CETUXIMAB SOLUTION FOR INFUSION 800MG AND 700MG, MAINTENANCE TREATMENT
     Route: 065
     Dates: start: 20171117
  9. MAGNESIUM ISOGLYCYRRHIZINATE [Concomitant]
     Active Substance: MAGNESIUM ISOGLYCYRRHIZINATE
     Route: 041
  10. CETUXIMAB. [Concomitant]
     Active Substance: CETUXIMAB
     Indication: ADENOCARCINOMA OF COLON
     Dosage: 700 MG AND 800 MG ALTERNATELY ON DAY 1 PER 2 WEEKS; LAST CHEMOTHERAPY TIME OCTOBER 20, 2017, 800 MG
     Route: 065
     Dates: start: 20171020

REACTIONS (4)
  - Type 2 diabetes mellitus [Unknown]
  - Tumour necrosis [Unknown]
  - Hepatic function abnormal [Unknown]
  - White blood cell count decreased [Unknown]

NARRATIVE: CASE EVENT DATE: 2017
